FAERS Safety Report 14908305 (Version 3)
Quarter: 2019Q3

REPORT INFORMATION
  Report Type: Spontaneous
  Country: DE (occurrence: DE)
  Receive Date: 20180517
  Receipt Date: 20190918
  Transmission Date: 20191004
  Serious: Yes (Life-Threatening, Hospitalization, Other)
  Sender: FDA-Public Use
  Company Number: DE-PFIZER INC-2018201596

PATIENT
  Age: 21 Year
  Sex: Male

DRUGS (22)
  1. LORAZEPAM. [Concomitant]
     Active Substance: LORAZEPAM
     Dosage: 1 MG, DAILY, 0-0-1
  2. NOVALGIN (METAMIZOLE SODIUM) [Concomitant]
     Active Substance: METAMIZOLE SODIUM
     Dosage: 1 G, UNK
  3. LINEZOLID. [Suspect]
     Active Substance: LINEZOLID
     Indication: PNEUMONIA STAPHYLOCOCCAL
     Dosage: 2 DF, DAILY ( 1-0-1)
     Route: 042
     Dates: start: 20180315, end: 20180318
  4. LINEZOLID. [Interacting]
     Active Substance: LINEZOLID
     Dosage: UNK
     Dates: start: 20190319
  5. COTRIMOXAZOL [Concomitant]
     Active Substance: SULFAMETHOXAZOLE\TRIMETHOPRIM
     Indication: ACINETOBACTER INFECTION
     Dosage: 960 MG (2 DF), DAILY, 1-0-1
     Route: 042
     Dates: start: 20180315, end: 20180319
  6. ESCITALOPRAM [Interacting]
     Active Substance: ESCITALOPRAM OXALATE
     Dosage: 5 UG, AS NEEDED
  7. L-THYROXIN [Concomitant]
     Active Substance: LEVOTHYROXINE SODIUM
     Dosage: 75 UG, 1X/DAY (1-0-0)
  8. FLOXAL [Concomitant]
     Active Substance: OFLOXACIN
     Indication: VISUAL IMPAIRMENT
  9. LEVETIRACETAM. [Concomitant]
     Active Substance: LEVETIRACETAM
     Dosage: 1.5 G, 2X/DAY (1-0-1)
  10. NORADRENALIN [NOREPINEPHRINE] [Concomitant]
     Active Substance: NOREPINEPHRINE
     Dosage: UNK
     Dates: start: 20180317
  11. POLAMIDON [Concomitant]
     Active Substance: LEVOMETHADONE
     Dosage: 10 MG, UNK
  12. ESOMEPRAZOLE MAGNESIUM. [Interacting]
     Active Substance: ESOMEPRAZOLE MAGNESIUM
     Dosage: 40 MG, UNK
  13. FLOXAL [Concomitant]
     Active Substance: OFLOXACIN
     Indication: KERATOPLASTY
  14. COTRIMOXAZOL [Concomitant]
     Active Substance: SULFAMETHOXAZOLE\TRIMETHOPRIM
     Indication: STENOTROPHOMONAS INFECTION
  15. BACLOFEN. [Concomitant]
     Active Substance: BACLOFEN
     Dosage: 5 MG, UNK  (2-1-2-1)
  16. PREDNISOLONE. [Concomitant]
     Active Substance: PREDNISOLONE
     Dosage: 7.5 MG, 1X/DAY (1-0-0)
     Dates: end: 20180426
  17. IVABRADINE [Concomitant]
     Active Substance: IVABRADINE
     Dosage: 7.5 MG, 2X/DAY
  18. SCOPOLAMIN [Concomitant]
     Active Substance: SCOPOLAMINE
     Dosage: UNK (CHANGE EVERY 3 DAYS)
     Route: 062
  19. PREDNISOLONE. [Concomitant]
     Active Substance: PREDNISOLONE
     Dosage: 10 MG, UNK
  20. PREDNISOLONE. [Concomitant]
     Active Substance: PREDNISOLONE
     Dosage: 5 MG, 1X/DAY
     Dates: end: 20180503
  21. FLOXAL [Concomitant]
     Active Substance: OFLOXACIN
     Indication: CORNEAL EPITHELIUM DEFECT
     Dosage: UNK, 4X/DAY (BOTH EYES)
  22. NALOXONE/TILIDINE [Concomitant]
     Dosage: 10 GTT, AS NEEDED (TILIDINE/NALOXON 25/2MG)
     Dates: start: 20180318

REACTIONS (4)
  - Status epilepticus [Not Recovered/Not Resolved]
  - Serotonin syndrome [Not Recovered/Not Resolved]
  - Body temperature increased [Not Recovered/Not Resolved]
  - Drug interaction [Not Recovered/Not Resolved]

NARRATIVE: CASE EVENT DATE: 20180317
